FAERS Safety Report 14404323 (Version 2)
Quarter: 2018Q2

REPORT INFORMATION
  Report Type: Report from Study
  Country: KR (occurrence: KR)
  Receive Date: 20180117
  Receipt Date: 20180406
  Transmission Date: 20180711
  Serious: Yes (Other)
  Sender: FDA-Public Use
  Company Number: KR-GILEAD-2018-0315700

PATIENT
  Age: 41 Year
  Sex: Female

DRUGS (46)
  1. DENOGAN [Concomitant]
     Active Substance: PROPACETAMOL HYDROCHLORIDE
     Indication: PNEUMONIA
     Dosage: 1 G, UNK
     Route: 042
     Dates: start: 20170710, end: 20170714
  2. DULCOLAX-S [Concomitant]
     Indication: CONSTIPATION
     Dosage: 1 DF, UNK
     Route: 048
     Dates: start: 20170716, end: 20170716
  3. DULCOLAX-S [Concomitant]
     Dosage: 1 DF, UNK
     Route: 048
     Dates: start: 20170721, end: 20170721
  4. TYLENOL ER [Concomitant]
     Active Substance: ACETAMINOPHEN
     Indication: PNEUMONIA
     Dosage: 1950 MG, UNK
     Route: 048
     Dates: start: 20170711, end: 20170712
  5. CANESTEN 1 [Concomitant]
     Indication: VULVOVAGINAL CANDIDIASIS
     Dosage: 500 MG, UNK
     Route: 067
     Dates: start: 20170721, end: 20170721
  6. MUCOSTA [Concomitant]
     Active Substance: REBAMIPIDE
     Indication: PNEUMONIA
     Dosage: 200 MG, UNK
     Route: 048
     Dates: start: 20170710
  7. GASTER [Concomitant]
     Active Substance: FAMOTIDINE
     Indication: BRONCHOSCOPY
     Dosage: 20 MG, UNK
     Route: 042
     Dates: start: 20170712, end: 20170712
  8. FLUNIL                             /00044201/ [Concomitant]
     Indication: BRONCHOSCOPY
     Dosage: 1500 MG, UNK
     Route: 042
     Dates: start: 20170712, end: 20170712
  9. MYDRIN-P [Concomitant]
     Active Substance: PHENYLEPHRINE HYDROCHLORIDE\TROPICAMIDE
     Indication: CYTOMEGALOVIRUS INFECTION
     Dosage: UNK, PRN
     Route: 047
     Dates: start: 20170713, end: 20170713
  10. TRITTICO [Concomitant]
     Active Substance: TRAZODONE HYDROCHLORIDE
     Indication: DEPRESSION
     Dosage: 25 MG, UNK
     Route: 048
     Dates: start: 20170720, end: 20170720
  11. ADIPAM                             /00058402/ [Concomitant]
     Indication: ANXIETY
     Dosage: 30 MG, UNK
     Route: 048
     Dates: start: 20170724, end: 20170727
  12. UCERAX [Concomitant]
     Indication: ANXIETY
     Dosage: 90 MG, UNK
     Route: 048
     Dates: start: 20170805, end: 20170805
  13. ELVITEGRAVIR/COBICISTAT/EMTRICITABINE/TENOFOVIR ALAFENAMIDE [Suspect]
     Active Substance: COBICISTAT\ELVITEGRAVIR\EMTRICITABINE\TENOFOVIR
     Indication: HIV INFECTION
     Dosage: 1 DF, QD
     Route: 048
     Dates: start: 20170801, end: 20170803
  14. TYLENOL ER [Concomitant]
     Active Substance: ACETAMINOPHEN
     Dosage: 1300 MG, UNK
     Route: 048
     Dates: start: 20170731, end: 20170731
  15. CODEINE PHOSPHATE [Concomitant]
     Active Substance: CODEINE PHOSPHATE
     Indication: PNEUMONIA
     Dosage: 60 MG, UNK
     Route: 048
     Dates: start: 20170712, end: 20170801
  16. RESPILENE                          /00094201/ [Concomitant]
     Active Substance: PHOLCODINE
     Indication: PNEUMONIA
     Dosage: 112.5 MG, UNK
     Route: 048
     Dates: start: 20170711, end: 20170712
  17. DULCOLAX-S [Concomitant]
     Dosage: 1 DF, UNK
     Route: 048
     Dates: start: 20170726, end: 20170726
  18. LEXAPRO [Concomitant]
     Active Substance: ESCITALOPRAM OXALATE
     Indication: DEPRESSION
     Dosage: 5 MG, UNK
     Route: 048
     Dates: start: 20170721, end: 20170722
  19. PHENIRAMIN [Concomitant]
     Indication: RASH
     Dosage: 4 MG, UNK
     Route: 042
     Dates: start: 20170722, end: 20170725
  20. ADIPAM                             /00058402/ [Concomitant]
     Dosage: 30 MG, UNK
     Route: 048
     Dates: start: 20170802, end: 20170811
  21. FULLGRAM [Concomitant]
     Indication: PNEUMONIA
     Dosage: 1800 MG, UNK
     Route: 042
     Dates: start: 20170725, end: 20170801
  22. ISENTRESS [Concomitant]
     Active Substance: RALTEGRAVIR POTASSIUM
     Indication: HIV INFECTION
     Dosage: 800 MG, UNK
     Route: 048
     Dates: start: 20170810
  23. FREEFOL MCT [Concomitant]
     Indication: COLONOSCOPY
     Dosage: 120 MG, UNK
     Route: 042
     Dates: start: 20170731, end: 20170731
  24. CYMEVENE                           /00784201/ [Concomitant]
     Active Substance: GANCICLOVIR
     Indication: CYTOMEGALOVIRUS INFECTION
     Dosage: 440 MG, UNK
     Route: 042
     Dates: start: 20170712, end: 20170725
  25. DIFLUCAN [Concomitant]
     Active Substance: FLUCONAZOLE
     Indication: VULVOVAGINAL CANDIDIASIS
     Dosage: 20 MG, UNK
     Route: 048
     Dates: start: 20170718, end: 20170724
  26. KIVEXA [Concomitant]
     Active Substance: ABACAVIR SULFATE\LAMIVUDINE
     Indication: HIV INFECTION
     Dosage: 1 DF, UNK
     Route: 048
     Dates: start: 20170810
  27. COTRIM [Concomitant]
     Active Substance: SULFAMETHOXAZOLE\TRIMETHOPRIM
     Indication: PNEUMONIA
     Dosage: 40 ML, UNK
     Route: 042
     Dates: start: 20170711, end: 20170725
  28. SOLONDO [Concomitant]
     Active Substance: PREDNISOLONE
     Indication: PNEUMONIA
     Dosage: 400 MG, UNK
     Route: 048
     Dates: start: 20170711, end: 20170804
  29. MIDAZOLAM [Concomitant]
     Active Substance: MIDAZOLAM HYDROCHLORIDE
     Indication: BRONCHOSCOPY
     Dosage: 3 MG, UNK
     Route: 042
     Dates: start: 20170712, end: 20170712
  30. STILNOX [Concomitant]
     Active Substance: ZOLPIDEM TARTRATE
     Indication: INSOMNIA
     Dosage: 5 MG, UNK
     Route: 048
     Dates: start: 20170723
  31. DAPSONE. [Concomitant]
     Active Substance: DAPSONE
     Dosage: 200 MG, UNK
     Route: 048
     Dates: start: 20170813
  32. CEFTRIAXONE. [Concomitant]
     Active Substance: CEFTRIAXONE
     Indication: PNEUMONIA
     Dosage: 2 G, UNK
     Route: 042
     Dates: start: 20170710, end: 20170711
  33. CURAN [Concomitant]
     Active Substance: RANITIDINE HYDROCHLORIDE
     Indication: PNEUMONIA
     Dosage: 300 MG, UNK
     Route: 048
     Dates: start: 20170710, end: 20170725
  34. PERIOLIMEL [Concomitant]
     Indication: IRRITABLE BOWEL SYNDROME
     Dosage: 1000 ML, UNK
     Route: 042
     Dates: start: 20170710, end: 20170712
  35. PROFOL                             /00700101/ [Concomitant]
     Indication: BRONCHOSCOPY
     Dosage: 20 MG, UNK
     Route: 042
     Dates: start: 20170712, end: 20170712
  36. DUPHALAC EASY [Concomitant]
     Indication: CONSTIPATION
     Dosage: 15 ML, UNK
     Route: 048
     Dates: start: 20170719, end: 20170719
  37. ERDOS [Concomitant]
     Active Substance: ERDOSTEINE
     Indication: PNEUMONIA
     Dosage: 600 MG, UNK
     Route: 048
     Dates: start: 20170710, end: 20170801
  38. SEROQUEL [Concomitant]
     Active Substance: QUETIAPINE FUMARATE
     Indication: DEPRESSION
     Dosage: 12.5 MG, UNK
     Route: 048
     Dates: start: 20170721, end: 20170722
  39. CALAMIN NAF [Concomitant]
     Indication: PRURITUS
     Dosage: UNK, PRN
     Route: 061
     Dates: start: 20170807, end: 20170816
  40. VIVAQUINE [Concomitant]
     Indication: RASH
     Dosage: 30 MG, UNK
     Route: 048
     Dates: start: 20170725, end: 20170801
  41. MIRTAX                             /00428402/ [Concomitant]
     Indication: DEPRESSION
     Dosage: 75 MG, UNK
     Route: 048
     Dates: start: 20170726, end: 20170815
  42. DAPSONE. [Concomitant]
     Active Substance: DAPSONE
     Indication: ANTIFUNGAL PROPHYLAXIS
     Dosage: 200 MG, UNK
     Route: 048
     Dates: start: 20170802, end: 20170804
  43. ZITHROMAX [Concomitant]
     Active Substance: AZITHROMYCIN DIHYDRATE
     Indication: PNEUMONIA
     Dosage: 250 MG, UNK
     Route: 048
     Dates: start: 20170717, end: 20170816
  44. COLONLYTE [Concomitant]
     Indication: COLONOSCOPY
     Dosage: 4 L, UNK
     Route: 048
     Dates: start: 20170731, end: 20170731
  45. THIAMINE. [Concomitant]
     Active Substance: THIAMINE
     Indication: IRRITABLE BOWEL SYNDROME
     Dosage: 100 MG, UNK
     Route: 042
     Dates: start: 20170710, end: 20170712
  46. PAN-B COMP [Concomitant]
     Indication: IRRITABLE BOWEL SYNDROME
     Dosage: 2 L, UNK
     Route: 042
     Dates: start: 20170710, end: 20170712

REACTIONS (2)
  - Pruritus [Recovered/Resolved]
  - Drug eruption [Recovered/Resolved]

NARRATIVE: CASE EVENT DATE: 20170802
